FAERS Safety Report 6884689-3 (Version None)
Quarter: 2010Q3

REPORT INFORMATION
  Report Type: 
  Country: None (occurrence: None)
  Receive Date: 20100729
  Receipt Date: 20070820
  Transmission Date: 20110219
  Serious: No
  Sender: FDA-Public Use
  Company Number: US-PFIZER INC-2007069690

PATIENT
  Sex: Female
  Weight: 70.31 kg

DRUGS (2)
  1. CELEBREX [Suspect]
     Indication: ARTHRALGIA
     Dates: start: 20070818, end: 20070819
  2. AVALIDE [Concomitant]
     Indication: HYPERTENSION

REACTIONS (3)
  - DISCOMFORT [None]
  - PRURITUS [None]
  - URTICARIA [None]
